FAERS Safety Report 9248473 (Version 1)
Quarter: 2013Q1

REPORT INFORMATION
  Report Type: Spontaneous
  Country: US (occurrence: None)
  Receive Date: 20130305
  Receipt Date: 20130305
  Transmission Date: 20140127
  Serious: Yes (Hospitalization)
  Sender: FDA-Public Use
  Company Number: 163-21880-12060916 (0)

PATIENT
  Age: 71 Year
  Sex: Male
  Weight: 90.27 kg

DRUGS (5)
  1. REVLIMID [Suspect]
     Indication: PLASMA CELL MYELOMA
     Route: 048
     Dates: start: 20111013
  2. AMLODIPINE (AMLODIPINE) [Concomitant]
  3. DEXAMETHASONE (DEXAMETHASONE) [Concomitant]
  4. LEVOTHYROXINE (LEVOTHYROXINE) [Concomitant]
  5. NAPROXEN (NAPROXEN) [Concomitant]

REACTIONS (2)
  - Pulmonary embolism [None]
  - Chest pain [None]
